FAERS Safety Report 8770678 (Version 3)
Quarter: 2012Q4

REPORT INFORMATION
  Report Type: 
  Country: GB (occurrence: GB)
  Receive Date: 20120906
  Receipt Date: 20121012
  Transmission Date: 20130627
  Serious: Yes (Death, Other)
  Sender: FDA-Public Use
  Company Number: PHFR2012GB004340

PATIENT
  Age: 72 Year
  Sex: Male

DRUGS (9)
  1. NILOTINIB [Suspect]
     Indication: CHRONIC MYELOID LEUKAEMIA
     Dosage: 300 mg, BID
     Route: 048
     Dates: start: 20120717, end: 20120731
  2. OMEPRAZOLE [Concomitant]
     Route: 048
  3. BISOPROLOL [Concomitant]
     Route: 048
  4. DOXAZOSIN [Concomitant]
     Route: 048
  5. FUROSEMIDE [Concomitant]
     Route: 048
  6. METFORMIN [Concomitant]
     Route: 048
  7. THYROXINE [Concomitant]
     Route: 048
  8. ASPIRINE [Concomitant]
     Route: 048
  9. PREGABALIN [Concomitant]
     Route: 048

REACTIONS (3)
  - Renal failure acute [Fatal]
  - Blood creatinine increased [Fatal]
  - C-reactive protein increased [Fatal]
